FAERS Safety Report 8560136-0 (Version None)
Quarter: 2012Q3

REPORT INFORMATION
  Report Type: 
  Country: None (occurrence: None)
  Receive Date: 20120802
  Receipt Date: 20120723
  Transmission Date: 20120928
  Serious: Yes (Other)
  Sender: FDA-Public Use
  Company Number: US-009507513-1207USA011294

PATIENT

DRUGS (5)
  1. VOLTAREN [Suspect]
     Dosage: 200 MG, UNK
     Route: 048
  2. CALCIUM CARBONATE [Suspect]
     Dosage: 500 MG, UNK
     Route: 048
  3. ZOCOR [Suspect]
     Dosage: 20 MG, UNK
     Route: 048
  4. ACTIQ [Suspect]
     Dosage: 600 MICROGRAM, UNK
     Route: 048
  5. METHOTREXATE SODIUM [Suspect]
     Dosage: 2.857 MG, UNK
     Route: 058

REACTIONS (3)
  - WEIGHT DECREASED [None]
  - DIARRHOEA [None]
  - OFF LABEL USE [None]
